FAERS Safety Report 23819306 (Version 1)
Quarter: 2024Q2

REPORT INFORMATION
  Report Type: Spontaneous
  Country: US (occurrence: US)
  Receive Date: 20240506
  Receipt Date: 20240506
  Transmission Date: 20240716
  Serious: Yes (Other)
  Sender: FDA-Public Use
  Company Number: US-CADILA HEALTHCARE LIMITED-US-ZYDUS-106321

PATIENT

DRUGS (11)
  1. METFORMIN [Suspect]
     Active Substance: METFORMIN HYDROCHLORIDE
     Indication: Product used for unknown indication
     Dosage: UNK
     Route: 065
  2. TOPIRAMATE [Suspect]
     Active Substance: TOPIRAMATE
     Indication: Product used for unknown indication
     Dosage: UNK
     Route: 065
  3. LAMOTRIGINE [Suspect]
     Active Substance: LAMOTRIGINE
     Indication: Mood swings
     Dosage: UNK
     Route: 065
  4. OLANZAPINE [Suspect]
     Active Substance: OLANZAPINE
     Indication: Mood swings
     Dosage: 25 MILLIGRAM
     Route: 065
  5. OLANZAPINE [Suspect]
     Active Substance: OLANZAPINE
     Indication: Bipolar I disorder
     Dosage: 5 MILLIGRAM
     Route: 065
  6. MELATONIN [Suspect]
     Active Substance: MELATONIN
     Indication: Product used for unknown indication
     Dosage: UNK
     Route: 065
  7. NALTREXONE [Suspect]
     Active Substance: NALTREXONE
     Indication: Product used for unknown indication
     Dosage: UNK
     Route: 065
  8. SEMAGLUTIDE [Suspect]
     Active Substance: SEMAGLUTIDE
     Indication: Product used for unknown indication
     Dosage: UNK
     Route: 065
  9. CLOZAPINE [Concomitant]
     Active Substance: CLOZAPINE
     Indication: Mood swings
     Dosage: UNK
     Route: 065
  10. LITHIUM [Concomitant]
     Active Substance: LITHIUM
     Indication: Mood swings
     Dosage: UNK
     Route: 065
  11. QUETIAPINE [Concomitant]
     Active Substance: QUETIAPINE
     Indication: Mood swings
     Dosage: UNK
     Route: 065

REACTIONS (5)
  - Suicidal ideation [Unknown]
  - Weight increased [Unknown]
  - Drug ineffective [Unknown]
  - Impaired gastric emptying [Unknown]
  - Nausea [Unknown]
